FAERS Safety Report 14971193 (Version 1)
Quarter: 2018Q2

REPORT INFORMATION
  Report Type: Report from Study
  Country: US (occurrence: US)
  Receive Date: 20180604
  Receipt Date: 20180604
  Transmission Date: 20180711
  Serious: Yes (Hospitalization, Other)
  Sender: FDA-Public Use
  Company Number: US-GILEAD-2018-0339105

PATIENT
  Age: 57 Year
  Sex: Female

DRUGS (2)
  1. EMTRICITABINE/TENOFOVIR DISOPROXIL FUMARATE [Suspect]
     Active Substance: EMTRICITABINE\TENOFOVIR DISOPROXIL FUMARATE
     Indication: HIV INFECTION
  2. EMTRICITABINE/TENOFOVIR DISOPROXIL FUMARATE [Suspect]
     Active Substance: EMTRICITABINE\TENOFOVIR DISOPROXIL FUMARATE
     Indication: ADULT T-CELL LYMPHOMA/LEUKAEMIA
     Dosage: 200/300MG, QD
     Route: 048

REACTIONS (9)
  - Adult T-cell lymphoma/leukaemia [Not Recovered/Not Resolved]
  - Deltaretrovirus test positive [Not Recovered/Not Resolved]
  - Malaise [Unknown]
  - Lethargy [Not Recovered/Not Resolved]
  - Off label use [Not Recovered/Not Resolved]
  - Facial asymmetry [Not Recovered/Not Resolved]
  - Headache [Not Recovered/Not Resolved]
  - Diplopia [Not Recovered/Not Resolved]
  - Asthenia [Unknown]

NARRATIVE: CASE EVENT DATE: 201802
